FAERS Safety Report 6402661-4 (Version None)
Quarter: 2009Q4

REPORT INFORMATION
  Report Type: 
  Country: None (occurrence: None)
  Receive Date: 20091009
  Receipt Date: 20090930
  Transmission Date: 20100525
  Serious: Yes (Hospitalization)
  Sender: FDA-Public Use
  Company Number: ADR34262009

PATIENT
  Age: 75 Year
  Sex: Male

DRUGS (3)
  1. CIPROFLOXACIN [Suspect]
     Indication: INFECTION PROPHYLAXIS
     Dosage: ORAL
     Route: 048
     Dates: start: 20080111, end: 20080112
  2. ASPIRIN [Concomitant]
  3. PERINDOPRIL [Concomitant]

REACTIONS (2)
  - BACTERAEMIA [None]
  - CONVULSION [None]
